FAERS Safety Report 23652900 (Version 1)
Quarter: 2024Q1

REPORT INFORMATION
  Report Type: Spontaneous
  Country: US (occurrence: US)
  Receive Date: 20240320
  Receipt Date: 20240320
  Transmission Date: 20240410
  Serious: No
  Sender: FDA-Public Use
  Company Number: US-BAYER-2024A040220

PATIENT
  Age: 36 Year
  Sex: Female

DRUGS (1)
  1. SKYLA [Suspect]
     Active Substance: LEVONORGESTREL
     Indication: Contraception
     Dosage: 14?G/DAY
     Route: 015
     Dates: start: 20180223, end: 20240308

REACTIONS (2)
  - Biopsy cervix [None]
  - Unintentional medical device removal [None]

NARRATIVE: CASE EVENT DATE: 20240308
